FAERS Safety Report 15691885 (Version 1)
Quarter: 2018Q4

REPORT INFORMATION
  Report Type: Spontaneous
  Country: SE (occurrence: SE)
  Receive Date: 20181205
  Receipt Date: 20181205
  Transmission Date: 20190205
  Serious: Yes (Other)
  Sender: FDA-Public Use
  Company Number: SE-JNJFOC-20181122479

PATIENT
  Age: 38 Year
  Sex: Female

DRUGS (4)
  1. MORPHINE [Suspect]
     Active Substance: MORPHINE
     Indication: PULMONARY PAIN
     Route: 065
     Dates: start: 2018
  2. PREGABALIN. [Suspect]
     Active Substance: PREGABALIN
     Indication: PULMONARY PAIN
     Route: 065
     Dates: start: 2018
  3. SALAZOPYRIN [Suspect]
     Active Substance: SULFASALAZINE
     Indication: PRODUCT USED FOR UNKNOWN INDICATION
     Route: 065
     Dates: end: 2018
  4. REMICADE [Suspect]
     Active Substance: INFLIXIMAB
     Indication: ANKYLOSING SPONDYLITIS
     Dosage: INITIATED 3 TO 4 YEARS AGO
     Route: 042
     Dates: end: 20180829

REACTIONS (2)
  - Pulmonary pain [Not Recovered/Not Resolved]
  - Asthma [Not Recovered/Not Resolved]

NARRATIVE: CASE EVENT DATE: 201808
